FAERS Safety Report 9479691 (Version 2)
Quarter: 2013Q3

REPORT INFORMATION
  Report Type: Spontaneous
  Country: FR (occurrence: FR)
  Receive Date: 20130828
  Receipt Date: 20130924
  Transmission Date: 20140515
  Serious: Yes (Disabling)
  Sender: FDA-Public Use
  Company Number: PHHY2013FR091934

PATIENT
  Age: 80 Year
  Sex: Female
  Weight: 60 kg

DRUGS (5)
  1. AFINITOR [Suspect]
     Indication: METASTATIC NEOPLASM
     Dosage: 5 MG, QD
     Route: 048
     Dates: start: 20130328, end: 201307
  2. AFINITOR [Suspect]
     Dosage: 5 MG, QD
     Route: 048
     Dates: start: 20130814
  3. FASLODEX [Concomitant]
     Dosage: 500 MG, QMO
     Route: 048
     Dates: start: 20130124
  4. INDAPAMIDE [Concomitant]
     Route: 048
  5. BETAXOLOL [Concomitant]
     Route: 048

REACTIONS (2)
  - Tympanic membrane disorder [Not Recovered/Not Resolved]
  - Arthralgia [Not Recovered/Not Resolved]
